FAERS Safety Report 7236197 (Version 3)
Quarter: 2016Q2

REPORT INFORMATION
  Report Type: Spontaneous
  Country: IT (occurrence: IT)
  Receive Date: 20100104
  Receipt Date: 20160404
  Transmission Date: 20160815
  Serious: Yes (Hospitalization, Other)
  Sender: FDA-Public Use
  Company Number: IT-ELI_LILLY_AND_COMPANY-IT200912004990

PATIENT
  Age: 0 Day

DRUGS (4)
  1. ZYPREXA [Suspect]
     Active Substance: OLANZAPINE
     Indication: DEPRESSION
     Dosage: 5 MG, DAILY (1/D)
     Route: 064
     Dates: end: 20091126
  2. EUTIMIL [Suspect]
     Active Substance: PAROXETINE HYDROCHLORIDE
     Indication: DEPRESSION
     Dosage: 20 MG, DAILY (1/D)
     Route: 064
  3. EUTIMIL [Suspect]
     Active Substance: PAROXETINE HYDROCHLORIDE
     Indication: DEPRESSION
     Dosage: 20 MG, DAILY (1/D)
     Route: 064
  4. ZYPREXA [Suspect]
     Active Substance: OLANZAPINE
     Indication: DEPRESSION
     Dosage: 5 MG, DAILY (1/D)
     Route: 064
     Dates: end: 20091126

REACTIONS (11)
  - Hypotonia neonatal [Recovered/Resolved]
  - Bradycardia [Recovered/Resolved]
  - Convulsion neonatal [Recovered/Resolved]
  - Off label use [Unknown]
  - Acidosis [Recovered/Resolved]
  - Drug withdrawal syndrome neonatal [Recovered/Resolved]
  - Apnoea [Recovered/Resolved]
  - Neonatal hyponatraemia [Recovered/Resolved]
  - Foetal exposure during pregnancy [Recovered/Resolved]
  - Cyanosis [Recovered/Resolved]
  - Opisthotonus [Recovered/Resolved]

NARRATIVE: CASE EVENT DATE: 20091126
